FAERS Safety Report 22345364 (Version 1)
Quarter: 2023Q2

REPORT INFORMATION
  Report Type: Spontaneous
  Country: FR (occurrence: FR)
  Receive Date: 20230519
  Receipt Date: 20230519
  Transmission Date: 20230721
  Serious: Yes (Other)
  Sender: FDA-Public Use
  Company Number: None

PATIENT
  Age: 67 Year
  Sex: Female

DRUGS (4)
  1. BOSUTINIB [Suspect]
     Active Substance: BOSUTINIB
     Indication: Chronic myeloid leukaemia
     Dosage: 100 MG, DAILY (DOSE INCREASE OF 100 MG/DAY EVERY TWO WEEKS UP TO 400 MG/DAY)
     Route: 048
     Dates: start: 201804
  2. BOSUTINIB [Suspect]
     Active Substance: BOSUTINIB
     Dosage: 200 MG, DAILY  (DOSE INCREASE OF 100 MG/DAY EVERY TWO WEEKS UP TO 400 MG/DAY)
     Route: 048
     Dates: start: 2018
  3. BOSUTINIB [Suspect]
     Active Substance: BOSUTINIB
     Dosage: 300 MG, DAILY  (DOSE INCREASE OF 100 MG/DAY EVERY TWO WEEKS UP TO 400 MG/DAY)
     Route: 048
     Dates: start: 2018
  4. BOSUTINIB [Suspect]
     Active Substance: BOSUTINIB
     Dosage: 400 MG, DAILY  (DOSE INCREASE OF 100 MG/DAY EVERY TWO WEEKS UP TO 400 MG/DAY)
     Route: 048
     Dates: start: 2018

REACTIONS (1)
  - Colitis [Not Recovered/Not Resolved]

NARRATIVE: CASE EVENT DATE: 20230215
